FAERS Safety Report 6504756-3 (Version None)
Quarter: 2009Q4

REPORT INFORMATION
  Report Type: 
  Country: None (occurrence: None)
  Receive Date: 20091214
  Receipt Date: 20091207
  Transmission Date: 20100525
  Serious: Yes (Hospitalization, Other)
  Sender: FDA-Public Use
  Company Number: WAES 0912USA01185

PATIENT
  Age: 62 Year
  Sex: Female
  Weight: 91.6266 kg

DRUGS (11)
  1. CAP VORINOSTAT UNK [Suspect]
     Indication: RENAL CELL CARCINOMA
     Dosage: PO
     Route: 048
  2. TAB SORAFENIB UNK [Suspect]
     Indication: RENAL CELL CARCINOMA
     Dosage: 400 MG/BID/PO
     Route: 048
     Dates: start: 20091201, end: 20091206
  3. CITRACAL [Concomitant]
  4. ALBUTEROL [Concomitant]
  5. AMITRIPTYLINE HYDROCHLORIDE [Concomitant]
  6. ASPIRIN [Concomitant]
  7. ATORVASTATIN CALCIUM [Concomitant]
  8. FEXOFENADINE HCL [Concomitant]
  9. LEVOTHYROXINE SODIUM [Concomitant]
  10. MONTELUKAST SODIUM [Concomitant]
  11. VERAPAMIL [Concomitant]

REACTIONS (4)
  - CHEST PAIN [None]
  - FIBRIN D DIMER INCREASED [None]
  - GASTROOESOPHAGEAL REFLUX DISEASE [None]
  - HYPERTENSION [None]
